FAERS Safety Report 26078288 (Version 1)
Quarter: 2025Q4

REPORT INFORMATION
  Report Type: Spontaneous
  Country: EU (occurrence: EU)
  Receive Date: 20251122
  Receipt Date: 20251122
  Transmission Date: 20260117
  Serious: Yes (Hospitalization, Other)
  Sender: ASTELLAS
  Company Number: EU-ASTELLAS-2025-AER-063640

PATIENT
  Age: 44 Year
  Sex: Female

DRUGS (4)
  1. XOSPATA [Suspect]
     Active Substance: GILTERITINIB
     Indication: Acute myeloid leukaemia recurrent
     Route: 065
     Dates: start: 20210302, end: 20210309
  2. XOSPATA [Suspect]
     Active Substance: GILTERITINIB
     Indication: FLT3 gene mutation
     Dosage: RESUMPTION OF GILTERITINIB AT A REDUCED DOSE OF 80 MG/DAY.
     Route: 065
     Dates: start: 20210429, end: 20210628
  3. XOSPATA [Suspect]
     Active Substance: GILTERITINIB
     Dosage: RESUMED
     Route: 065
     Dates: start: 20210713
  4. COLISTIN [Suspect]
     Active Substance: COLISTIN
     Indication: Pyrexia
     Route: 065
     Dates: start: 2021, end: 2021

REACTIONS (11)
  - Gastrointestinal toxicity [Unknown]
  - Hypertension [Unknown]
  - Nephropathy toxic [Unknown]
  - Haematotoxicity [Unknown]
  - Hepatotoxicity [Unknown]
  - Cellulitis [Unknown]
  - Febrile neutropenia [Unknown]
  - Hepatic steatosis [Unknown]
  - Catheter site infection [Unknown]
  - Klebsiella infection [Unknown]
  - Staphylococcal infection [Unknown]

NARRATIVE: CASE EVENT DATE: 20210101
